FAERS Safety Report 14650479 (Version 1)
Quarter: 2018Q1

REPORT INFORMATION
  Report Type: Spontaneous
  Country: US (occurrence: US)
  Receive Date: 20180316
  Receipt Date: 20180316
  Transmission Date: 20180509
  Serious: Yes (Other)
  Sender: FDA-Public Use
  Company Number: US-NAPPMUNDI-USA-2018-0143057

PATIENT
  Age: 57 Year
  Sex: Female

DRUGS (1)
  1. BUTRANS [Suspect]
     Active Substance: BUPRENORPHINE
     Indication: SPINAL PAIN
     Dosage: 20 MCG/HR, WEEKLY
     Route: 062
     Dates: start: 20180313, end: 20180314

REACTIONS (7)
  - Vertigo [Recovered/Resolved]
  - Hypotension [Recovered/Resolved]
  - Loss of consciousness [Recovered/Resolved]
  - Pulse absent [Recovered/Resolved]
  - Diarrhoea [Recovered/Resolved]
  - Tinnitus [Recovered/Resolved]
  - Paraesthesia [Recovered/Resolved]

NARRATIVE: CASE EVENT DATE: 20180314
